FAERS Safety Report 20463237 (Version 1)
Quarter: 2022Q1

REPORT INFORMATION
  Report Type: Spontaneous
  Country: None (occurrence: US)
  Receive Date: 20220211
  Receipt Date: 20220211
  Transmission Date: 20220423
  Serious: Yes (Hospitalization, Other)
  Sender: FDA-Public Use
  Company Number: US-Sunstar Americas Inc.-2125819

PATIENT
  Sex: Male
  Weight: 103.8 kg

DRUGS (139)
  1. PAROEX [Suspect]
     Active Substance: CHLORHEXIDINE GLUCONATE
     Indication: Pharyngitis
     Route: 002
     Dates: start: 20200801, end: 20201015
  2. ACCUNEB [Concomitant]
     Active Substance: ALBUTEROL SULFATE
     Dates: start: 20201007, end: 20201007
  3. ACETAZOLAMIDE [Concomitant]
     Active Substance: ACETAZOLAMIDE
     Route: 002
     Dates: start: 20200818, end: 20200822
  4. ACETAZOLAMIDE [Concomitant]
     Active Substance: ACETAZOLAMIDE
     Route: 002
     Dates: start: 20200804, end: 20200904
  5. DUONEB [Concomitant]
     Active Substance: ALBUTEROL SULFATE\IPRATROPIUM BROMIDE
     Route: 055
     Dates: start: 20200801, end: 20200921
  6. ALBUMINAR-25 [Concomitant]
     Active Substance: ALBUMIN HUMAN
     Route: 042
     Dates: start: 20200815, end: 20200825
  7. ALBUMINAR-5 [Concomitant]
     Active Substance: ALBUMIN HUMAN
     Route: 042
     Dates: start: 20200813, end: 20200918
  8. ALBUMINAR-5 [Concomitant]
     Active Substance: ALBUMIN HUMAN
     Route: 042
     Dates: start: 20200904, end: 20200904
  9. VANCOMYCIN HYDROCHLORIDE [Concomitant]
     Active Substance: VANCOMYCIN HYDROCHLORIDE
     Route: 042
     Dates: start: 20200808, end: 20200921
  10. VANCOMYCIN HYDROCHLORIDE [Concomitant]
     Active Substance: VANCOMYCIN HYDROCHLORIDE
     Route: 042
     Dates: start: 20200911, end: 20200917
  11. VANCOMYCIN HYDROCHLORIDE [Concomitant]
     Active Substance: VANCOMYCIN HYDROCHLORIDE
     Route: 042
     Dates: start: 20200915, end: 20200915
  12. VASOPRESSIN [Concomitant]
     Active Substance: VASOPRESSIN
     Route: 042
     Dates: start: 20200904, end: 20200910
  13. VASOPRESSIN [Concomitant]
     Active Substance: VASOPRESSIN
     Route: 042
     Dates: start: 20200910, end: 20200917
  14. TOBRAMYCIN [Concomitant]
     Active Substance: TOBRAMYCIN
     Route: 055
     Dates: start: 20200813, end: 20200823
  15. SODIUM CHLORIDE [Concomitant]
     Active Substance: SODIUM CHLORIDE
     Route: 040
     Dates: start: 20200909, end: 20200909
  16. SODIUM CHLORIDE [Concomitant]
     Active Substance: SODIUM CHLORIDE
     Route: 042
     Dates: start: 20200808, end: 20200911
  17. SODIUM CHLORIDE [Concomitant]
     Active Substance: SODIUM CHLORIDE
     Route: 042
     Dates: start: 20200802, end: 20200802
  18. SODIUM CHLORIDE HYPERTONICITY [Concomitant]
     Active Substance: SODIUM CHLORIDE
     Route: 042
     Dates: start: 20200902, end: 20200903
  19. SODIUM PHOSPHATES [Concomitant]
     Active Substance: SODIUM PHOSPHATE, DIBASIC, ANHYDROUS\SODIUM PHOSPHATE, DIBASIC, HEPTAHYDRATE\SODIUM PHOSPHATE, MONOB
     Route: 042
     Dates: start: 20200807, end: 20200929
  20. SILVER NITRATE APPLICATORS [Concomitant]
     Active Substance: SILVER NITRATE
     Route: 061
     Dates: start: 20200828, end: 20200828
  21. RECOTHROM [Concomitant]
     Active Substance: THROMBIN ALFA
     Route: 061
     Dates: start: 20200906, end: 20200906
  22. SODIUM CHLORIDE NORMAL SALT [Concomitant]
     Active Substance: SODIUM CHLORIDE
     Route: 042
     Dates: start: 20200901, end: 20200905
  23. SPIRONOLACTONE [Concomitant]
     Active Substance: SPIRONOLACTONE
     Route: 002
     Dates: start: 20200823, end: 20200904
  24. SODIUM BICARBONATE [Concomitant]
     Active Substance: SODIUM BICARBONATE
     Route: 002
     Dates: start: 20200807, end: 20200929
  25. SODIUM CHLORIDE [Concomitant]
     Active Substance: SODIUM CHLORIDE
     Route: 042
     Dates: start: 20200812, end: 20200812
  26. ROCURONIUM BROMIDE [Concomitant]
     Active Substance: ROCURONIUM BROMIDE
     Route: 042
     Dates: start: 10100813, end: 20200929
  27. BSS [Concomitant]
     Active Substance: CALCIUM CHLORIDE\MAGNESIUM CHLORIDE\POTASSIUM CHLORIDE\SODIUM ACETATE\SODIUM CHLORIDE\SODIUM CITRATE
     Route: 031
     Dates: start: 20200827, end: 20200827
  28. QUETIAPINE [Concomitant]
     Active Substance: QUETIAPINE
     Route: 002
     Dates: start: 20200813, end: 20200929
  29. SENNA LAXATIVE [Concomitant]
     Active Substance: SENNOSIDES
     Route: 048
     Dates: start: 20200801, end: 20200929
  30. SODIUM BICARBONATE [Concomitant]
     Active Substance: SODIUM BICARBONATE
     Route: 042
     Dates: start: 20200904, end: 20200920
  31. AMPICILLIN SODIUM [Concomitant]
     Active Substance: AMPICILLIN SODIUM
     Route: 042
     Dates: start: 20200823, end: 20200904
  32. NICARDIPINE HYDROCHLORIDE [Concomitant]
     Active Substance: NICARDIPINE HYDROCHLORIDE
     Route: 042
     Dates: start: 20200813, end: 20200813
  33. NOREPINEPHRINE BITARTRATE [Concomitant]
     Active Substance: NOREPINEPHRINE BITARTRATE
     Route: 042
     Dates: start: 20200822, end: 20200927
  34. NOREPINEPHRINE BITARTRATE [Concomitant]
     Active Substance: NOREPINEPHRINE BITARTRATE
     Route: 042
     Dates: start: 20200803, end: 20200915
  35. METOCLOPRAMIDE HYDROCHLORIDE [Concomitant]
     Active Substance: METOCLOPRAMIDE HYDROCHLORIDE
     Route: 042
     Dates: start: 20200813, end: 20200829
  36. MICAFUNGIN. [Concomitant]
     Active Substance: MICAFUNGIN SODIUM
     Route: 042
     Dates: start: 20200823, end: 20200903
  37. MICAFUNGIN. [Concomitant]
     Active Substance: MICAFUNGIN SODIUM
     Route: 041
     Dates: start: 20200904, end: 20200920
  38. MIDAZOLAM HYDROCHLORIDE [Concomitant]
     Active Substance: MIDAZOLAM HYDROCHLORIDE
     Route: 042
     Dates: start: 20200806, end: 20200806
  39. MIDAZOLAM HYDROCHLORIDE [Concomitant]
     Active Substance: MIDAZOLAM HYDROCHLORIDE
     Route: 042
     Dates: start: 20200801, end: 20200924
  40. MIDAZOLAM HYDROCHLORIDE [Concomitant]
     Active Substance: MIDAZOLAM HYDROCHLORIDE
     Route: 042
     Dates: start: 20200806, end: 20200906
  41. METOLAZONE [Concomitant]
     Active Substance: METOLAZONE
     Route: 002
     Dates: start: 20200820, end: 20200820
  42. METOLAZONE [Concomitant]
     Active Substance: METOLAZONE
     Route: 002
     Dates: start: 20200831, end: 20200831
  43. MIDODRINE HYDROCHLORIDE [Concomitant]
     Active Substance: MIDODRINE HYDROCHLORIDE
     Route: 002
     Dates: start: 20200927, end: 20200928
  44. MIDODRINE HYDROCHLORIDE [Concomitant]
     Active Substance: MIDODRINE HYDROCHLORIDE
     Route: 002
     Dates: start: 20200805, end: 20200926
  45. MINOCYCLINE HYDROCHLORIDE [Concomitant]
     Active Substance: MINOCYCLINE HYDROCHLORIDE
     Route: 042
     Dates: start: 10100909, end: 20200921
  46. MILRINONE LACTATE IN DEXTROSE [Concomitant]
     Active Substance: MILRINONE LACTATE
     Route: 041
     Dates: start: 20200905, end: 20200906
  47. ROXICODONE [Concomitant]
     Active Substance: OXYCODONE HYDROCHLORIDE
     Route: 002
     Dates: start: 20200802, end: 20200904
  48. PANTOPRAZOLE SODIUM [Concomitant]
     Active Substance: PANTOPRAZOLE SODIUM
     Route: 042
     Dates: start: 20200804, end: 20200929
  49. PANCRELIPASE [Concomitant]
     Active Substance: PANCRELIPASE
     Route: 002
     Dates: start: 20200807, end: 20200807
  50. K PHOS NEUTRAL [Concomitant]
     Active Substance: POTASSIUM PHOSPHATE, MONOBASIC\SODIUM PHOSPHATE, DIBASIC, ANHYDROUS\SODIUM PHOSPHATE, MONOBASIC, MON
     Route: 002
     Dates: start: 20200918, end: 20200922
  51. POTASSIUM BICARBONATE [Concomitant]
     Active Substance: POTASSIUM BICARBONATE
     Route: 002
     Dates: start: 20200826, end: 20200829
  52. POTASSIUM CHLORIDE [Concomitant]
     Active Substance: POTASSIUM CHLORIDE
     Route: 048
     Dates: start: 20200813, end: 20200822
  53. POTASSIUM CHLORIDE EXTENDED RELEASE [Concomitant]
     Active Substance: POTASSIUM CHLORIDE
     Route: 002
     Dates: start: 20200823, end: 20200924
  54. DIPRIVAN [Concomitant]
     Active Substance: PROPOFOL
     Route: 042
     Dates: start: 20200801, end: 20200828
  55. QUETIAPINE [Concomitant]
     Active Substance: QUETIAPINE
     Route: 002
     Dates: start: 20200814, end: 20200920
  56. MIRALAX [Concomitant]
     Active Substance: POLYETHYLENE GLYCOL 3350
     Route: 048
     Dates: start: 20200801, end: 20200929
  57. POTASSIUM CHLORIDE [Concomitant]
     Active Substance: POTASSIUM CHLORIDE
     Route: 042
     Dates: start: 20200812, end: 20200916
  58. PHENYLEPHRINE HCL [Concomitant]
     Active Substance: PHENYLEPHRINE HYDROCHLORIDE
     Route: 042
     Dates: start: 20200911, end: 20200911
  59. PHENYLEPHRINE HCL [Concomitant]
     Active Substance: PHENYLEPHRINE HYDROCHLORIDE
     Route: 042
     Dates: start: 20200811, end: 20200811
  60. CEFEPIME HYDROCHLORIDE [Concomitant]
     Active Substance: CEFEPIME HYDROCHLORIDE
     Route: 042
     Dates: start: 20200801, end: 20200823
  61. CEFTRIAXONE SODIUM [Concomitant]
     Active Substance: CEFTRIAXONE SODIUM
     Route: 042
     Dates: start: 20200823, end: 20200903
  62. CEFAZOLIN SODIUM [Concomitant]
     Active Substance: CEFAZOLIN SODIUM
     Route: 042
     Dates: start: 20200905, end: 20200922
  63. ZERBAXA [Concomitant]
     Active Substance: CEFTOLOZANE SULFATE\TAZOBACTAM SODIUM
     Route: 042
     Dates: start: 20200911, end: 20200921
  64. ARTIFICAL TEARS [Concomitant]
     Active Substance: GLYCERIN\HYPROMELLOSE 2910 (15 MPA.S)\POLYETHYLENE GLYCOL 400\PROPYLENE GLYCOL
     Route: 047
     Dates: start: 20200801, end: 20200912
  65. BUMETANIDE [Concomitant]
     Active Substance: BUMETANIDE
     Route: 042
     Dates: start: 20200830, end: 20200904
  66. CALCIUM CHLORIDE [Concomitant]
     Active Substance: CALCIUM CHLORIDE
     Route: 042
     Dates: start: 20200827, end: 20200917
  67. ACETYLCYSTEINE [Concomitant]
     Active Substance: ACETYLCYSTEINE
     Route: 048
     Dates: start: 20200816, end: 20200816
  68. ACETYLCYSTEINE [Concomitant]
     Active Substance: ACETYLCYSTEINE
     Route: 048
     Dates: start: 20200816, end: 20200924
  69. ACETYLCYSTEINE [Concomitant]
     Active Substance: ACETYLCYSTEINE
     Route: 055
     Dates: start: 20200927, end: 20200929
  70. ASPIRIN [Concomitant]
     Active Substance: ASPIRIN
     Route: 002
     Dates: start: 20200907, end: 20200907
  71. ASPIRIN [Concomitant]
     Active Substance: ASPIRIN
     Route: 002
     Dates: start: 20200813, end: 20200929
  72. ALBUTEROL SULFATE [Concomitant]
     Active Substance: ALBUTEROL SULFATE
     Route: 055
     Dates: start: 20200927, end: 20200929
  73. CISATRACURIUM BESYLATE [Concomitant]
     Active Substance: CISATRACURIUM BESYLATE
     Route: 042
     Dates: end: 20200803
  74. CISATRACURIUM BESYLATE [Concomitant]
     Active Substance: CISATRACURIUM BESYLATE
     Route: 042
     Dates: start: 20200807, end: 20200807
  75. CISATRACURIUM BESYLATE [Concomitant]
     Active Substance: CISATRACURIUM BESYLATE
     Route: 042
     Dates: start: 20200803, end: 20200803
  76. CLONAZEPAM [Concomitant]
     Active Substance: CLONAZEPAM
     Route: 002
     Dates: start: 20200813, end: 20200929
  77. CLONAZEPAM [Concomitant]
     Active Substance: CLONAZEPAM
     Route: 002
     Dates: start: 20200816, end: 20200916
  78. CLOTRIMAZOLE AND BETAMETHASONE DIPROPIONATE [Concomitant]
     Active Substance: BETAMETHASONE\BETAMETHASONE DIPROPIONATE\CLOTRIMAZOLE
     Route: 061
     Dates: start: 20200804, end: 20200812
  79. CHLOROTHIAZIDE SODIUM [Concomitant]
     Active Substance: CHLOROTHIAZIDE SODIUM
     Route: 042
     Dates: start: 20200817, end: 20200819
  80. NIMBEX [Concomitant]
     Active Substance: CISATRACURIUM BESYLATE
     Route: 042
     Dates: start: 20200801, end: 20200812
  81. CLINDAMYCIN [Concomitant]
     Active Substance: CLINDAMYCIN
     Route: 042
     Dates: start: 20200825, end: 20200825
  82. BUDESONIDE [Concomitant]
     Active Substance: BUDESONIDE
     Route: 055
     Dates: start: 20200801, end: 20200801
  83. DEXTROSE MONOHYDRATE [Concomitant]
     Active Substance: DEXTROSE MONOHYDRATE
     Route: 042
     Dates: start: 20200905, end: 20200922
  84. DEXTROSE MONOHYDRATE [Concomitant]
     Active Substance: DEXTROSE MONOHYDRATE
     Route: 041
     Dates: start: 20200822, end: 20200903
  85. DEXTROSE MONOHYDRATE [Concomitant]
     Active Substance: DEXTROSE MONOHYDRATE
     Route: 041
     Dates: start: 20200904, end: 20200916
  86. DEXTROSE MONOHYDRATE [Interacting]
     Active Substance: DEXTROSE MONOHYDRATE
     Route: 042
     Dates: start: 20200807, end: 20200929
  87. COLLAGENASE SANTYL [Concomitant]
     Active Substance: COLLAGENASE CLOSTRIDIUM HISTOLYTICUM
     Route: 061
     Dates: start: 20200923, end: 20200928
  88. DAPTOMYCIN [Concomitant]
     Active Substance: DAPTOMYCIN
     Route: 042
     Dates: start: 20200821, end: 20200822
  89. DEXTROSE MONOHYDRATE [Concomitant]
     Active Substance: DEXTROSE MONOHYDRATE
     Route: 042
     Dates: start: 20200912, end: 20200912
  90. EPINEPHRINE HYDROCHLORIDE [Concomitant]
     Active Substance: EPINEPHRINE HYDROCHLORIDE
     Route: 042
     Dates: start: 20200904, end: 20200916
  91. EPOPROSTENOL SODIUM [Concomitant]
     Active Substance: EPOPROSTENOL SODIUM
     Route: 042
     Dates: start: 20200801, end: 20200905
  92. XYLOCAINE(R) -MPF (LIDOCAINE HCI AND EPINEPHRINE) [Concomitant]
     Active Substance: EPINEPHRINE BITARTRATE\LIDOCAINE HYDROCHLORIDE ANHYDROUS
     Route: 042
     Dates: start: 20200908, end: 20200908
  93. LIDOCAINE HYDROCHLORIDE [Concomitant]
     Active Substance: LIDOCAINE HYDROCHLORIDE
     Route: 042
     Dates: start: 20200803, end: 20200906
  94. LIDOCAINE VISCOUS [Concomitant]
     Active Substance: LIDOCAINE HYDROCHLORIDE
     Route: 061
     Dates: start: 20200919, end: 20200919
  95. LIDOCAINE VISCOUS [Concomitant]
     Active Substance: LIDOCAINE HYDROCHLORIDE
     Route: 061
     Dates: start: 20200919, end: 20200919
  96. LIDOCAINE HYDROCHLORIDE [Concomitant]
     Active Substance: LIDOCAINE HYDROCHLORIDE
     Route: 042
     Dates: start: 20200828, end: 20200925
  97. LINEZOLID [Concomitant]
     Active Substance: LINEZOLID
     Route: 041
     Dates: start: 20200904, end: 20200909
  98. DIAZEPAM [Concomitant]
     Active Substance: DIAZEPAM
     Route: 002
     Dates: start: 20200903, end: 20200907
  99. LANTUS [Concomitant]
     Active Substance: INSULIN GLARGINE
     Route: 042
     Dates: start: 20200807, end: 20200929
  100. HUMALOG [Concomitant]
     Active Substance: INSULIN LISPRO
     Route: 042
     Dates: start: 20200801, end: 20200925
  101. FAMOTIDINE [Concomitant]
     Active Substance: FAMOTIDINE
     Route: 042
     Dates: start: 20200806, end: 20200813
  102. DEXAMETHASONE [Concomitant]
     Active Substance: DEXAMETHASONE
     Route: 042
     Dates: start: 20200806, end: 20200810
  103. DEXTROSE [Concomitant]
     Active Substance: DEXTROSE
     Route: 042
     Dates: start: 20200827, end: 20200929
  104. DEXTROSE [Concomitant]
     Active Substance: DEXTROSE
     Route: 042
     Dates: start: 20200904, end: 20200904
  105. DEXTROMETHORPHAN HYDROBROMIDE AND GUAIFENESIN [Concomitant]
     Active Substance: DEXTROMETHORPHAN HYDROBROMIDE\GUAIFENESIN
     Route: 048
     Dates: start: 20200924, end: 20200929
  106. DEXMEDETOMIDINE HYDROCHLORIDE [Concomitant]
     Active Substance: DEXMEDETOMIDINE HYDROCHLORIDE
     Route: 041
     Dates: start: 20200909, end: 20200918
  107. ATARAX [Concomitant]
     Active Substance: HYDROXYZINE HYDROCHLORIDE
     Route: 002
     Dates: start: 20200904, end: 20200907
  108. ATARAX [Concomitant]
     Active Substance: HYDROXYZINE HYDROCHLORIDE
     Route: 002
     Dates: start: 20200903, end: 20200904
  109. DILAUDID [Concomitant]
     Active Substance: HYDROMORPHONE HYDROCHLORIDE
     Route: 042
     Dates: start: 20200821, end: 20200906
  110. HYDROMORPHONE HYDROCHLORIDE [Concomitant]
     Active Substance: HYDROMORPHONE HYDROCHLORIDE
     Route: 002
     Dates: start: 20200904, end: 20200913
  111. HYDROMORPHONE HYDROCHLORIDE [Concomitant]
     Active Substance: HYDROMORPHONE HYDROCHLORIDE
     Route: 048
     Dates: start: 20200913, end: 20200918
  112. DILAUDID-HP [Concomitant]
     Active Substance: HYDROMORPHONE HYDROCHLORIDE
     Route: 042
     Dates: start: 20200907, end: 20200907
  113. SOLU-CORTEF [Concomitant]
     Active Substance: HYDROCORTISONE SODIUM SUCCINATE
     Route: 042
     Dates: start: 20200913, end: 20200913
  114. SOLU-CORTEF [Concomitant]
     Active Substance: HYDROCORTISONE SODIUM SUCCINATE
     Route: 042
     Dates: start: 20200910, end: 20200925
  115. HYDROMORPHONE HYDROCHLORIDE [Concomitant]
     Active Substance: HYDROMORPHONE HYDROCHLORIDE
     Route: 042
     Dates: start: 20200913, end: 20200913
  116. HUMULIN R [Concomitant]
     Active Substance: INSULIN HUMAN
     Route: 042
     Dates: start: 20200904, end: 20200904
  117. K PHOS NEUTRAL [Concomitant]
     Active Substance: POTASSIUM PHOSPHATE, MONOBASIC\SODIUM PHOSPHATE, DIBASIC, ANHYDROUS\SODIUM PHOSPHATE, MONOBASIC, MON
     Route: 048
     Dates: start: 20200911, end: 20200928
  118. OMNIPAQUE [Concomitant]
     Active Substance: IOHEXOL
     Route: 048
     Dates: start: 20200904, end: 20200912
  119. KETAMINE HYDROCHLORIDE [Concomitant]
     Active Substance: KETAMINE HYDROCHLORIDE
     Route: 042
     Dates: start: 20200801, end: 20200915
  120. MAGNESIUM CITRATE [Concomitant]
     Active Substance: MAGNESIUM CITRATE
     Route: 048
     Dates: start: 20200805, end: 20200806
  121. MEROPENEM [Concomitant]
     Active Substance: MEROPENEM
     Route: 042
     Dates: start: 20200808, end: 20200911
  122. MAGNESIUM OXIDE [Concomitant]
     Active Substance: MAGNESIUM OXIDE
     Route: 048
     Dates: start: 20200927, end: 20200928
  123. MAGNESIUM SULFATE IN WATER [Concomitant]
     Active Substance: MAGNESIUM SULFATE HEPTAHYDRATE
     Route: 041
     Dates: start: 20200814, end: 20200928
  124. METHYLENE BLUE [Concomitant]
     Active Substance: METHYLENE BLUE
     Route: 042
     Dates: start: 20200910, end: 20200910
  125. METHYLENE BLUE [Concomitant]
     Active Substance: METHYLENE BLUE
     Route: 042
     Dates: start: 20200910, end: 20200912
  126. METHADONE HYDROCHLORIDE [Concomitant]
     Active Substance: METHADONE HYDROCHLORIDE
     Route: 002
     Dates: start: 20200903, end: 20200904
  127. PULMOZYME [Concomitant]
     Active Substance: DORNASE ALFA
     Route: 055
     Dates: start: 20200816, end: 20200817
  128. DOCUSATE SODIUM [Concomitant]
     Active Substance: DOCUSATE SODIUM
     Route: 048
     Dates: start: 20200801, end: 20200929
  129. HYDROCODONE BITARTRATE AND HOMATROPINE METHYLBROMIDE [Concomitant]
     Active Substance: HOMATROPINE METHYLBROMIDE\HYDROCODONE BITARTRATE
     Route: 048
     Dates: start: 20200816, end: 20200908
  130. HEPARIN SODIUM [Concomitant]
     Active Substance: HEPARIN SODIUM
     Route: 042
     Dates: start: 20200811, end: 20200922
  131. HYDRALAZINE HYDROCHLORIDE [Concomitant]
     Active Substance: HYDRALAZINE HYDROCHLORIDE
     Route: 042
     Dates: start: 20200813, end: 20200926
  132. FLUCONAZOLE [Concomitant]
     Active Substance: FLUCONAZOLE
     Route: 002
     Dates: start: 20200804, end: 20200810
  133. FUROSEMIDE [Concomitant]
     Active Substance: FUROSEMIDE
     Route: 042
     Dates: start: 20200805, end: 20200827
  134. FUROSEMIDE [Concomitant]
     Active Substance: FUROSEMIDE
     Route: 042
     Dates: start: 20200822, end: 20200903
  135. FENTANYL CITRATE [Concomitant]
     Active Substance: FENTANYL CITRATE
     Route: 042
     Dates: start: 20200827, end: 20200927
  136. FENTANYL CITRATE [Concomitant]
     Active Substance: FENTANYL CITRATE
     Route: 042
     Dates: start: 20200801, end: 20200821
  137. HEPARIN SODIUM AND SODIUM CHLORIDE [Concomitant]
     Active Substance: HEPARIN SODIUM
     Route: 042
     Dates: start: 20200812, end: 20200929
  138. BUDESONIDE AND FORMOTEROL FUMARATE DIHYDRATE [Concomitant]
     Active Substance: BUDESONIDE\FORMOTEROL FUMARATE
     Route: 055
     Dates: start: 20200801, end: 20200801
  139. ESMOLOL HYDROCHLORIDE IN SODIUM CHLORIDE [Concomitant]
     Active Substance: ESMOLOL HYDROCHLORIDE
     Route: 042
     Dates: start: 20200816, end: 20200817

REACTIONS (5)
  - Syncope [Unknown]
  - Burkholderia test positive [Unknown]
  - COVID-19 [Unknown]
  - Endotracheal intubation [Unknown]
  - Respiratory rate decreased [Unknown]

NARRATIVE: CASE EVENT DATE: 20200801
